FAERS Safety Report 4575410-2 (Version None)
Quarter: 2005Q1

REPORT INFORMATION
  Report Type: 
  Country: None (occurrence: None)
  Receive Date: 20050128
  Receipt Date: 20050128
  Transmission Date: 20050727
  Serious: Yes (Hospitalization)
  Sender: FDA-Public Use
  Company Number: None

PATIENT
  Age: 68 Year
  Sex: Female
  Weight: 74.8435 kg

DRUGS (1)
  1. VIOXX [Suspect]
     Dosage: 1 A DAY

REACTIONS (4)
  - FATIGUE [None]
  - PARAESTHESIA [None]
  - SPEECH DISORDER [None]
  - TRANSIENT ISCHAEMIC ATTACK [None]
